FAERS Safety Report 9860658 (Version 1)
Quarter: 2014Q1

REPORT INFORMATION
  Report Type: Spontaneous
  Country: GB (occurrence: None)
  Receive Date: 20140130
  Receipt Date: 20140130
  Transmission Date: 20141002
  Serious: Yes (Hospitalization)
  Sender: FDA-Public Use
  Company Number: FK201400217

PATIENT
  Age: 87 Year
  Sex: Male

DRUGS (12)
  1. FUROSEMIDE (MANUFACTURER UNKNOWN) (FUROSEMIDE) (FUROSEMIDE) [Suspect]
     Indication: HYPERTENSION
     Route: 048
     Dates: start: 20120301, end: 20120302
  2. CANDESARTAN [Suspect]
     Indication: HYPERTENSION
     Route: 048
     Dates: start: 20120301, end: 20120302
  3. ALFACALCIDOL [Concomitant]
  4. VITAMIN K (PHYTOMENADIONE) [Concomitant]
  5. ALLOPURINOL (ALLOPURINOL) [Concomitant]
  6. DIGOXIN (DIGOXIN) [Suspect]
  7. DIPROBASE (DIPROBASE) [Concomitant]
  8. EPREX (EPOTEIN ALFA) [Concomitant]
  9. RANITIDINE (RANITIDINE) [Concomitant]
  10. TIOTROPIUM BROMIDE (TIOTROPIUM BROMIDE) [Concomitant]
  11. TRIMETHOPRIM (TRIMETHOPRIM) [Concomitant]
  12. WARFARIN (WARFARIN) [Concomitant]

REACTIONS (9)
  - Aggression [None]
  - Confusional state [None]
  - Dysstasia [None]
  - Medication error [None]
  - Mobility decreased [None]
  - Renal impairment [None]
  - Renal failure acute [None]
  - Urinary tract infection [None]
  - International normalised ratio increased [None]
